FAERS Safety Report 11146211 (Version 3)
Quarter: 2015Q3

REPORT INFORMATION
  Report Type: Spontaneous
  Country: US (occurrence: US)
  Receive Date: 20150528
  Receipt Date: 20150807
  Transmission Date: 20151125
  Serious: No
  Sender: FDA-Public Use
  Company Number: US-PFIZER INC-2015176794

PATIENT
  Age: 53 Year
  Sex: Male
  Weight: 86 kg

DRUGS (4)
  1. LYRICA [Suspect]
     Active Substance: PREGABALIN
     Indication: DIABETIC NEUROPATHY
     Dosage: LOWER DOSE
  2. HUMALOG [Concomitant]
     Active Substance: INSULIN LISPRO
     Dosage: UNITS VARY, MAYBE 48 UNITS A DAY
  3. LYRICA [Suspect]
     Active Substance: PREGABALIN
     Indication: PAIN IN EXTREMITY
     Dosage: 200 MG, 2X/DAY
     Dates: start: 2014
  4. ASPIRIN. [Concomitant]
     Active Substance: ASPIRIN
     Dosage: 81 MG, DAILY
     Route: 048
     Dates: start: 1990

REACTIONS (5)
  - Weight increased [Unknown]
  - Pre-existing condition improved [Unknown]
  - Hypoaesthesia [Not Recovered/Not Resolved]
  - Drug effect incomplete [Recovered/Resolved]
  - Therapeutic response unexpected [Unknown]
